FAERS Safety Report 24760435 (Version 2)
Quarter: 2025Q1

REPORT INFORMATION
  Report Type: Report from Study
  Country: US (occurrence: US)
  Receive Date: 20241220
  Receipt Date: 20250228
  Transmission Date: 20250409
  Serious: Yes (Hospitalization)
  Sender: BAYER HEALTHCARE PHARMACEUTICALS INC.
  Company Number: US-BAYER-2024A178115

PATIENT
  Age: 74 Year
  Sex: Male

DRUGS (17)
  1. NUBEQA [Suspect]
     Active Substance: DAROLUTAMIDE
     Indication: Prostate cancer
     Dosage: 600 MG, BID
     Route: 048
     Dates: end: 20241117
  2. NUBEQA [Suspect]
     Active Substance: DAROLUTAMIDE
     Indication: Prostate cancer
     Dosage: 600 MG, BID
     Route: 048
  3. ATORVASTATIN [Concomitant]
     Active Substance: ATORVASTATIN
  4. VITAMIN B12 [Concomitant]
     Active Substance: CYANOCOBALAMIN
  5. BACTRIM [Concomitant]
     Active Substance: SULFAMETHOXAZOLE\TRIMETHOPRIM
  6. CALCIUM [Concomitant]
     Active Substance: CALCIUM
  7. DOCUSATE [Concomitant]
     Active Substance: DOCUSATE
  8. ERYTHROMYCIN [Concomitant]
     Active Substance: ERYTHROMYCIN
  9. INCRUSE ELLIPTA [Concomitant]
     Active Substance: UMECLIDINIUM BROMIDE
  10. KEYTRUDA [Concomitant]
     Active Substance: PEMBROLIZUMAB
  11. LINZESS [Concomitant]
     Active Substance: LINACLOTIDE
  12. LUPRON [Concomitant]
     Active Substance: LEUPROLIDE ACETATE
  13. MIRALAX [Concomitant]
     Active Substance: POLYETHYLENE GLYCOL 3350
  14. MUCUS RELIEF [Concomitant]
     Active Substance: GUAIFENESIN
  15. TAMSULOSIN [Concomitant]
     Active Substance: TAMSULOSIN
  16. VENTOLIN [Concomitant]
     Active Substance: ALBUTEROL SULFATE
  17. ZOFRAN [Concomitant]
     Active Substance: ONDANSETRON HYDROCHLORIDE

REACTIONS (3)
  - Gastrointestinal disorder [Not Recovered/Not Resolved]
  - Dyspepsia [Not Recovered/Not Resolved]
  - Hospitalisation [Unknown]
